FAERS Safety Report 21455262 (Version 1)
Quarter: 2022Q4

REPORT INFORMATION
  Report Type: Report from Study
  Country: US (occurrence: US)
  Receive Date: 20221014
  Receipt Date: 20221014
  Transmission Date: 20230112
  Serious: Yes (Hospitalization)
  Sender: FDA-Public Use
  Company Number: US-ABBVIE-4153245

PATIENT
  Sex: Female

DRUGS (1)
  1. IMBRUVICA [Suspect]
     Active Substance: IBRUTINIB
     Indication: Product used for unknown indication
     Route: 048

REACTIONS (5)
  - Cerebrovascular accident [Unknown]
  - Blood glucose abnormal [Recovering/Resolving]
  - Hemiparesis [Recovered/Resolved]
  - Cardiac murmur [Unknown]
  - Blood iron decreased [Unknown]
